FAERS Safety Report 24687774 (Version 2)
Quarter: 2024Q4

REPORT INFORMATION
  Report Type: Spontaneous
  Country: FR (occurrence: FR)
  Receive Date: 20241202
  Receipt Date: 20241230
  Transmission Date: 20250114
  Serious: Yes (Hospitalization, Other)
  Sender: GILEAD
  Company Number: FR-AFSSAPS-LM2024000683

PATIENT
  Age: 52 Year
  Sex: Female
  Weight: 60 kg

DRUGS (4)
  1. TRODELVY [Suspect]
     Active Substance: SACITUZUMAB GOVITECAN-HZIY
     Indication: Breast cancer metastatic
     Dosage: 650 MG ON D1 AND D8, 21-DAY CYCLE
     Route: 042
     Dates: start: 20230428, end: 20240420
  2. TRODELVY [Suspect]
     Active Substance: SACITUZUMAB GOVITECAN-HZIY
     Indication: HER2 low breast cancer
     Dosage: 10 MG/KG, Q1WK
     Route: 042
     Dates: start: 20230721, end: 20230915
  3. XGEVA [Concomitant]
     Active Substance: DENOSUMAB
  4. FILGRASTIM [Concomitant]
     Active Substance: FILGRASTIM
     Indication: HER2 negative breast cancer
     Route: 042
     Dates: start: 20230721, end: 20230725

REACTIONS (3)
  - Febrile bone marrow aplasia [Recovered/Resolved]
  - Anaemia [Unknown]
  - Neutropenia [Unknown]

NARRATIVE: CASE EVENT DATE: 20230802
